FAERS Safety Report 16164492 (Version 4)
Quarter: 2019Q2

REPORT INFORMATION
  Report Type: Spontaneous
  Country: FR (occurrence: FR)
  Receive Date: 20190405
  Receipt Date: 20190513
  Transmission Date: 20190711
  Serious: Yes (Death)
  Sender: FDA-Public Use
  Company Number: FR-ASTRAZENECA-2019SE52550

PATIENT
  Age: 23 Year
  Sex: Female

DRUGS (3)
  1. FASENRA [Suspect]
     Active Substance: BENRALIZUMAB
     Indication: ASTHMA
     Dosage: ONE INJECTION ONLY
     Route: 058
     Dates: start: 201902
  2. IODINE. [Suspect]
     Active Substance: IODINE
     Route: 065
  3. FASENRA [Suspect]
     Active Substance: BENRALIZUMAB
     Indication: EOSINOPHILIA
     Dosage: ONE INJECTION ONLY
     Route: 058
     Dates: start: 201902

REACTIONS (5)
  - Anaphylactic shock [Fatal]
  - Abdominal pain lower [Fatal]
  - Asthma [Fatal]
  - Brain hypoxia [Fatal]
  - Cardiac arrest [Fatal]

NARRATIVE: CASE EVENT DATE: 201902
